FAERS Safety Report 24371946 (Version 1)
Quarter: 2024Q3

REPORT INFORMATION
  Report Type: Spontaneous
  Country: US (occurrence: None)
  Receive Date: 20240926
  Receipt Date: 20240926
  Transmission Date: 20241017
  Serious: Yes (Other)
  Sender: Public
  Company Number: None

PATIENT
  Age: 57 Year
  Sex: Female

DRUGS (1)
  1. SYFOVRE [Suspect]
     Active Substance: PEGCETACOPLAN
     Dates: start: 20240912, end: 20240912

REACTIONS (6)
  - Ocular hyperaemia [None]
  - Headache [None]
  - Nausea [None]
  - Vitreous floaters [None]
  - Iritis [None]
  - Anterior chamber cell [None]

NARRATIVE: CASE EVENT DATE: 20240926
